FAERS Safety Report 13112797 (Version 1)
Quarter: 2017Q1

REPORT INFORMATION
  Report Type: Spontaneous
  Country: US (occurrence: US)
  Receive Date: 20170112
  Receipt Date: 20170112
  Transmission Date: 20170428
  Serious: No
  Sender: FDA-Public Use
  Company Number: None

PATIENT
  Age: 30 Year
  Sex: Female
  Weight: 78.75 kg

DRUGS (12)
  1. OMEPRAZOLE. [Concomitant]
     Active Substance: OMEPRAZOLE
  2. ZOLPIDEM TARTRATE. [Concomitant]
     Active Substance: ZOLPIDEM TARTRATE
  3. ONDANSETRON [Concomitant]
     Active Substance: ONDANSETRON
  4. NAPROXEN. [Concomitant]
     Active Substance: NAPROXEN
  5. NUVARING [Concomitant]
     Active Substance: ETHINYL ESTRADIOL\ETONOGESTREL
  6. ARMODAFINIL. [Suspect]
     Active Substance: ARMODAFINIL
     Indication: SOMNOLENCE
     Dosage: ?          QUANTITY:30 TABLET(S);?
     Route: 048
     Dates: start: 20160806, end: 20161206
  7. ALPRAZOLAM. [Concomitant]
     Active Substance: ALPRAZOLAM
  8. VYVANSE [Concomitant]
     Active Substance: LISDEXAMFETAMINE DIMESYLATE
  9. WOMEN^S MULTIVITAMIN [Concomitant]
  10. METFORMIN [Concomitant]
     Active Substance: METFORMIN HYDROCHLORIDE
  11. ZYRTEC [Concomitant]
     Active Substance: CETIRIZINE HYDROCHLORIDE
  12. CALCIUM CITRATE [Concomitant]
     Active Substance: CALCIUM CITRATE

REACTIONS (16)
  - Product substitution issue [None]
  - Vomiting [None]
  - Therapy cessation [None]
  - Dysgeusia [None]
  - Disease recurrence [None]
  - Abdominal pain upper [None]
  - Somnolence [None]
  - Disturbance in attention [None]
  - Malaise [None]
  - Nausea [None]
  - Product taste abnormal [None]
  - Gastric pH decreased [None]
  - Anxiety [None]
  - Feeling abnormal [None]
  - Drug effect decreased [None]
  - Drug dispensing error [None]

NARRATIVE: CASE EVENT DATE: 20160806
